FAERS Safety Report 7703047-2 (Version None)
Quarter: 2011Q3

REPORT INFORMATION
  Report Type: 
  Country: None (occurrence: None)
  Receive Date: 20110823
  Receipt Date: 20110810
  Transmission Date: 20111222
  Serious: Yes (Other)
  Sender: FDA-Public Use
  Company Number: JP-UCBSA-039095

PATIENT
  Sex: Male

DRUGS (5)
  1. KEPPRA [Suspect]
     Dosage: 2000 MG
     Route: 048
     Dates: start: 20110629, end: 20110101
  2. PHENYTOIN SODIUM CAP [Concomitant]
  3. DEPAKENE [Concomitant]
  4. TOPIRAMATE [Concomitant]
  5. KEPPRA [Suspect]
     Indication: EPILEPSY
     Dosage: 1000 MG
     Route: 048
     Dates: start: 20110615, end: 20110628

REACTIONS (1)
  - DELIRIUM [None]
